FAERS Safety Report 8033465-7 (Version None)
Quarter: 2012Q1

REPORT INFORMATION
  Report Type: 
  Country: None (occurrence: None)
  Receive Date: 20120110
  Receipt Date: 20120106
  Transmission Date: 20120608
  Serious: No
  Sender: FDA-Public Use
  Company Number: US-B.I. PHARMACEUTICALS,INC./RIDGEFIELD-2012-BP-00350BP

PATIENT
  Sex: Female

DRUGS (10)
  1. LIPITOR [Concomitant]
     Indication: BLOOD CHOLESTEROL INCREASED
     Route: 048
  2. SYNTHROID [Concomitant]
     Indication: HYPOTHYROIDISM
     Route: 048
  3. CALCIUM ACETATE [Concomitant]
     Indication: SUPPLEMENTATION THERAPY
     Route: 048
  4. METOPROLOL SUCCINATE [Concomitant]
     Indication: HYPERTENSION
     Route: 048
  5. PRADAXA [Suspect]
     Indication: ATRIAL FIBRILLATION
     Dosage: 300 MG
     Route: 048
     Dates: start: 20111220, end: 20120103
  6. KLOR-CON [Concomitant]
     Indication: SUPPLEMENTATION THERAPY
     Route: 048
  7. DILTIAZEM HCL [Concomitant]
     Indication: HYPERTENSION
     Route: 048
  8. SINGULAIR [Concomitant]
     Indication: ASTHMA
     Route: 048
  9. PANTOPRAZOLE [Concomitant]
     Indication: GASTROOESOPHAGEAL REFLUX DISEASE
     Route: 048
  10. SIMVASTATIN [Concomitant]
     Indication: HYPERLIPIDAEMIA
     Route: 048

REACTIONS (3)
  - PAIN IN EXTREMITY [None]
  - MUSCULOSKELETAL DISCOMFORT [None]
  - ARTHRALGIA [None]
